FAERS Safety Report 5592582-1 (Version None)
Quarter: 2007Q4

REPORT INFORMATION
  Report Type: 
  Country: None (occurrence: None)
  Receive Date: 20071207
  Receipt Date: 20070727
  Transmission Date: 20080405
  Serious: Yes (Other)
  Sender: FDA-Public Use
  Company Number: WWISSUE-102

PATIENT
  Sex: Female

DRUGS (2)
  1. FLURAZEPAM [Suspect]
     Dates: start: 20050101
  2. EMSAM [Suspect]

REACTIONS (1)
  - DRUG INEFFECTIVE [None]
